FAERS Safety Report 10062594 (Version 1)
Quarter: 2014Q1

REPORT INFORMATION
  Report Type: Spontaneous
  Country: US (occurrence: None)
  Receive Date: 20140313
  Receipt Date: 20140313
  Transmission Date: 20141002
  Serious: Yes (Other)
  Sender: FDA-Public Use
  Company Number: 1000052076

PATIENT
  Sex: 0

DRUGS (3)
  1. DALIRESP [Suspect]
     Indication: DYSPNOEA
  2. SINGULAIR (MONTELUKAST SODIUM) (MONTELUKAST SODIUM) [Concomitant]
  3. ANTIHISTAMINE NOS (ANTIHISTAMINE NOS) (ANTIHISTAMINE NOS) [Concomitant]

REACTIONS (2)
  - Insomnia [None]
  - Off label use [None]
